FAERS Safety Report 24795910 (Version 4)
Quarter: 2025Q1

REPORT INFORMATION
  Report Type: Report from Study
  Country: US (occurrence: US)
  Receive Date: 20250101
  Receipt Date: 20250211
  Transmission Date: 20250409
  Serious: Yes (Death, Hospitalization)
  Sender: ROCHE
  Company Number: US-ROCHE-10000164463

PATIENT
  Age: 63 Year
  Sex: Male
  Weight: 87.54 kg

DRUGS (13)
  1. OCREVUS [Suspect]
     Active Substance: OCRELIZUMAB
     Indication: Relapsing multiple sclerosis
     Dosage: THE PATIENT^S LAST ADMINISTERED OCREVUS WAS ON 26-JUL-2024.
     Route: 042
     Dates: start: 20220629
  2. LEFLUNOMIDE [Concomitant]
     Active Substance: LEFLUNOMIDE
  3. ROSUVASTATIN [Concomitant]
     Active Substance: ROSUVASTATIN
  4. VIAGRA [Concomitant]
     Active Substance: SILDENAFIL CITRATE
  5. TIZANIDINE [Concomitant]
     Active Substance: TIZANIDINE
  6. NIFEDIPINE [Concomitant]
     Active Substance: NIFEDIPINE
  7. AMBIEN [Concomitant]
     Active Substance: ZOLPIDEM TARTRATE
  8. JARDIANCE [Concomitant]
     Active Substance: EMPAGLIFLOZIN
  9. GLIPIZIDE [Concomitant]
     Active Substance: GLIPIZIDE
  10. XYZAL [Concomitant]
     Active Substance: LEVOCETIRIZINE DIHYDROCHLORIDE
  11. LISINOPRIL [Concomitant]
     Active Substance: LISINOPRIL
  12. AVONEX [Concomitant]
     Active Substance: INTERFERON BETA-1A
  13. AUBAGIO [Concomitant]
     Active Substance: TERIFLUNOMIDE

REACTIONS (7)
  - Fall [Unknown]
  - General physical health deterioration [Unknown]
  - COVID-19 [Not Recovered/Not Resolved]
  - Hyperkalaemia [Unknown]
  - Hypoxia [Unknown]
  - Gait disturbance [Unknown]
  - Pancreatitis acute [Fatal]

NARRATIVE: CASE EVENT DATE: 20240901
